FAERS Safety Report 8374510-9 (Version None)
Quarter: 2012Q2

REPORT INFORMATION
  Report Type: 
  Country: None (occurrence: None)
  Receive Date: 20120521
  Receipt Date: 20120511
  Transmission Date: 20120825
  Serious: Yes (Hospitalization, Other)
  Sender: FDA-Public Use
  Company Number: US-ALLERGAN-1206806US

PATIENT
  Age: 79 Year
  Sex: Female

DRUGS (4)
  1. LUMIGAN [Suspect]
     Indication: GLAUCOMA
     Dosage: 1 GTT, QHS
     Route: 047
     Dates: start: 20100501
  2. TIMOLOL MALEATE [Concomitant]
     Indication: GLAUCOMA
     Dosage: 2 GTT, BID
     Route: 047
  3. LUMIGAN [Suspect]
     Dosage: 2 GTT, QHS
     Route: 047
     Dates: end: 20100101
  4. LEVOTHYROXINE SODIUM [Concomitant]
     Indication: HYPOTHYROIDISM
     Dosage: 0.25 A?G, QD
     Route: 048

REACTIONS (6)
  - COUGH [None]
  - HEART RATE IRREGULAR [None]
  - SPINAL COLUMN STENOSIS [None]
  - FEELING COLD [None]
  - CHEST DISCOMFORT [None]
  - SENSATION OF FOREIGN BODY [None]
